FAERS Safety Report 6846064-7 (Version None)
Quarter: 2010Q3

REPORT INFORMATION
  Report Type: 
  Country: None (occurrence: None)
  Receive Date: 20100715
  Receipt Date: 20080212
  Transmission Date: 20110219
  Serious: No
  Sender: FDA-Public Use
  Company Number: US-PFIZER INC-2007073396

PATIENT
  Sex: Female
  Weight: 86.18 kg

DRUGS (8)
  1. CHANTIX [Suspect]
     Indication: SMOKING CESSATION THERAPY
     Route: 048
     Dates: start: 20070726
  2. VICODIN [Concomitant]
  3. XANAX [Concomitant]
  4. XOPENEX [Concomitant]
  5. SPIRIVA [Concomitant]
  6. ADVAIR DISKUS 100/50 [Concomitant]
  7. PLAVIX [Concomitant]
  8. ACETYLSALICYLIC ACID [Concomitant]

REACTIONS (2)
  - ABDOMINAL PAIN UPPER [None]
  - DYSGEUSIA [None]
